FAERS Safety Report 13130255 (Version 1)
Quarter: 2017Q1

REPORT INFORMATION
  Report Type: Spontaneous
  Country: CH (occurrence: FR)
  Receive Date: 20170119
  Receipt Date: 20170119
  Transmission Date: 20170428
  Serious: Yes (Other)
  Sender: FDA-Public Use
  Company Number: CH-LPDUSPRD-20170014

PATIENT
  Age: 74 Year
  Sex: Male

DRUGS (1)
  1. VENOFER [Suspect]
     Active Substance: IRON SUCROSE
     Dosage: 300MG, 2 TOTAL
     Route: 041
     Dates: start: 20161123, end: 20161125

REACTIONS (1)
  - Infusion site phlebitis [Unknown]

NARRATIVE: CASE EVENT DATE: 20161126
